FAERS Safety Report 25407102 (Version 1)
Quarter: 2025Q2

REPORT INFORMATION
  Report Type: Spontaneous
  Country: US (occurrence: US)
  Receive Date: 20250606
  Receipt Date: 20250606
  Transmission Date: 20250716
  Serious: No
  Sender: INCYTE
  Company Number: US-EVENT-002942

PATIENT

DRUGS (2)
  1. NIKTIMVO [Suspect]
     Active Substance: AXATILIMAB-CSFR
     Route: 065
  2. NIKTIMVO [Suspect]
     Active Substance: AXATILIMAB-CSFR
     Route: 065

REACTIONS (1)
  - Product preparation issue [Unknown]
